FAERS Safety Report 6971667-9 (Version None)
Quarter: 2010Q3

REPORT INFORMATION
  Report Type: 
  Country: None (occurrence: None)
  Receive Date: 20100908
  Receipt Date: 20100903
  Transmission Date: 20110219
  Serious: Yes (Death, Hospitalization, Other)
  Sender: FDA-Public Use
  Company Number: PHHY2010DE04020

PATIENT
  Age: 33 Year
  Sex: Male

DRUGS (2)
  1. CLOZAPINE [Suspect]
     Indication: SCHIZOPHRENIA, PARANOID TYPE
     Dosage: UNK
  2. CHLORPROTHIXENE [Suspect]

REACTIONS (12)
  - AGGRESSION [None]
  - ANTIPSYCHOTIC DRUG LEVEL INCREASED [None]
  - ASPHYXIA [None]
  - EMPHYSEMA [None]
  - FIBROSIS [None]
  - HEPATIC STEATOSIS [None]
  - HYPERTONIA [None]
  - LIPOMATOSIS [None]
  - LOSS OF CONSCIOUSNESS [None]
  - PLEURAL HAEMORRHAGE [None]
  - PULMONARY OEDEMA [None]
  - SEDATION [None]
